FAERS Safety Report 11396663 (Version 2)
Quarter: 2015Q3

REPORT INFORMATION
  Report Type: Spontaneous
  Country: US (occurrence: US)
  Receive Date: 20150819
  Receipt Date: 20150902
  Transmission Date: 20151125
  Serious: No
  Sender: FDA-Public Use
  Company Number: US-GLAXOSMITHKLINE-US2015117278

PATIENT
  Age: 81 Year
  Sex: Female

DRUGS (1)
  1. ALLI [Suspect]
     Active Substance: ORLISTAT
     Indication: WEIGHT LOSS DIET
     Dosage: UNK
     Dates: end: 20150812

REACTIONS (4)
  - Ill-defined disorder [Recovered/Resolved]
  - Product quality issue [Unknown]
  - Treatment noncompliance [Unknown]
  - Drug ineffective [Unknown]
